FAERS Safety Report 17276179 (Version 2)
Quarter: 2020Q2

REPORT INFORMATION
  Report Type: Report from Study
  Country: CA (occurrence: CA)
  Receive Date: 20200116
  Receipt Date: 20200407
  Transmission Date: 20200713
  Serious: No
  Sender: FDA-Public Use
  Company Number: CA-BEH-2020111438

PATIENT
  Age: 46 Year
  Sex: Female

DRUGS (18)
  1. PATADAY [Concomitant]
     Active Substance: OLOPATADINE HYDROCHLORIDE
  2. PREVACID [Concomitant]
     Active Substance: LANSOPRAZOLE
  3. BETADERM [BETAMETHASONE DIPROPIONATE;GENTAMICIN SULFATE] [Concomitant]
  4. GRAVOL [Concomitant]
     Active Substance: DIMENHYDRINATE
  5. NOVORAPID [Concomitant]
     Active Substance: INSULIN ASPART
  6. MAXALT [Concomitant]
     Active Substance: RIZATRIPTAN BENZOATE
  7. HIZENTRA [Suspect]
     Active Substance: HUMAN IMMUNOGLOBULIN G
     Indication: PRIMARY IMMUNODEFICIENCY SYNDROME
     Dosage: 10 GRAM, QW
     Route: 058
     Dates: start: 20190426
  8. VITAMIN D [COLECALCIFEROL] [Concomitant]
     Active Substance: CHOLECALCIFEROL
  9. FOLIC ACID. [Concomitant]
     Active Substance: FOLIC ACID
  10. BENADRYL [Concomitant]
     Active Substance: DIPHENHYDRAMINE HYDROCHLORIDE
  11. BRICANYL [Concomitant]
     Active Substance: TERBUTALINE SULFATE
  12. LACTULOSE. [Concomitant]
     Active Substance: LACTULOSE
  13. TYLENOL [Concomitant]
     Active Substance: ACETAMINOPHEN
  14. FERAMAX [Concomitant]
     Active Substance: IRON\POLYSACCHARIDES
  15. CYCLOSPORINE. [Concomitant]
     Active Substance: CYCLOSPORINE
  16. ZOLPIDEM [Concomitant]
     Active Substance: ZOLPIDEM TARTRATE
  17. SALOFALK [AMINOSALICYLIC ACID] [Concomitant]
     Active Substance: AMINOSALICYLIC ACID
  18. HYDROXYQUINOLINE [Concomitant]

REACTIONS (6)
  - Heart rate increased [Recovered/Resolved with Sequelae]
  - Asthenia [Recovered/Resolved with Sequelae]
  - Headache [Recovered/Resolved with Sequelae]
  - Feeling abnormal [Not Recovered/Not Resolved]
  - Sinusitis [Not Recovered/Not Resolved]
  - Ill-defined disorder [Unknown]

NARRATIVE: CASE EVENT DATE: 20190426
